FAERS Safety Report 4331207-X (Version None)
Quarter: 2004Q2

REPORT INFORMATION
  Report Type: 
  Country: None (occurrence: None)
  Receive Date: 20040402
  Receipt Date: 20040319
  Transmission Date: 20050107
  Serious: Yes (Life-Threatening)
  Sender: FDA-Public Use
  Company Number: 7661

PATIENT
  Age: 77 Year
  Sex: Female

DRUGS (6)
  1. DAUNORUBICIN HCL [Suspect]
  2. VINCRISTINE [Suspect]
  3. METHOTREXATE [Suspect]
     Route: 037
  4. CYTARABINE [Suspect]
  5. CYCLOPHOSPHAMIDE [Suspect]
  6. ASPARAGINASE [Suspect]

REACTIONS (1)
  - CEREBROVASCULAR ACCIDENT [None]
